FAERS Safety Report 6524552-0 (Version None)
Quarter: 2010Q1

REPORT INFORMATION
  Report Type: 
  Country: None (occurrence: None)
  Receive Date: 20100104
  Receipt Date: 20091223
  Transmission Date: 20100710
  Serious: Yes (Other)
  Sender: FDA-Public Use
  Company Number: US-ROCHE-676533

PATIENT

DRUGS (3)
  1. RIBAVIRIN [Suspect]
     Indication: HEPATITIS C
     Route: 064
     Dates: start: 20080624, end: 20081126
  2. PEG-INTRON [Suspect]
     Indication: HEPATITIS C
     Route: 064
     Dates: start: 20080624, end: 20081126
  3. FLINTSTONES VITAMIN [Concomitant]
     Dates: start: 20090409

REACTIONS (1)
  - PREMATURE BABY [None]
